FAERS Safety Report 7064477-8 (Version None)
Quarter: 2010Q4

REPORT INFORMATION
  Report Type: 
  Country: None (occurrence: None)
  Receive Date: 20101027
  Receipt Date: 20101019
  Transmission Date: 20110411
  Serious: Yes (Other)
  Sender: FDA-Public Use
  Company Number: AU-PFIZER INC-2010132687

PATIENT
  Age: 81 Year
  Sex: Female

DRUGS (2)
  1. LIPITOR [Suspect]
     Indication: BLOOD CHOLESTEROL INCREASED
     Dosage: 20 MG, 1X/DAY
     Route: 048
     Dates: start: 20101002, end: 20101019
  2. FISH OIL [Concomitant]
     Dosage: UNK
     Dates: start: 20101002, end: 20101019

REACTIONS (3)
  - HYPERSENSITIVITY [None]
  - PURPURA [None]
  - VASCULITIS [None]
